FAERS Safety Report 5428980-6 (Version None)
Quarter: 2007Q3

REPORT INFORMATION
  Report Type: 
  Country: None (occurrence: None)
  Receive Date: 20070829
  Receipt Date: 20070502
  Transmission Date: 20080115
  Serious: No
  Sender: FDA-Public Use
  Company Number: A0649731A

PATIENT
  Age: 22 Year
  Sex: Male

DRUGS (2)
  1. ACYCLOVIR [Suspect]
     Indication: HERPES ZOSTER
     Dosage: 700MG VARIABLE DOSE
     Route: 042
     Dates: start: 20070429, end: 20070430
  2. DILANTIN [Concomitant]

REACTIONS (2)
  - BLOOD CREATINE INCREASED [None]
  - RENAL IMPAIRMENT [None]
